FAERS Safety Report 25671272 (Version 1)
Quarter: 2025Q3

REPORT INFORMATION
  Report Type: Report from Study
  Country: US (occurrence: US)
  Receive Date: 20250812
  Receipt Date: 20250812
  Transmission Date: 20251021
  Serious: Yes (Other)
  Sender: SUNOVION
  Company Number: US-SMPA-2025SPA010210

PATIENT
  Age: 76 Year
  Sex: Male

DRUGS (7)
  1. ORGOVYX [Suspect]
     Active Substance: RELUGOLIX
     Indication: Prostate cancer
     Route: 048
  2. XTANDI [Suspect]
     Active Substance: ENZALUTAMIDE
     Indication: Product used for unknown indication
  3. NUBEQA [Suspect]
     Active Substance: DAROLUTAMIDE
     Indication: Product used for unknown indication
  4. CIALIS [Concomitant]
     Active Substance: TADALAFIL
  5. GABAPENTIN [Concomitant]
     Active Substance: GABAPENTIN
  6. POTASSIUM CITRATE [Concomitant]
     Active Substance: POTASSIUM CITRATE
  7. STRENSIQ [Concomitant]
     Active Substance: ASFOTASE ALFA

REACTIONS (8)
  - Seizure [Unknown]
  - Hypothalamo-pituitary disorder [Unknown]
  - Vision blurred [Unknown]
  - Blood glucose decreased [Unknown]
  - Hypernatriuria [Unknown]
  - Pruritus genital [Unknown]
  - Abdominal pain upper [Unknown]
  - Hyperhidrosis [Unknown]
